FAERS Safety Report 5132937-2 (Version None)
Quarter: 2006Q4

REPORT INFORMATION
  Report Type: 
  Country: None (occurrence: None)
  Receive Date: 20061019
  Receipt Date: 20061019
  Transmission Date: 20070319
  Serious: Yes (Other)
  Sender: FDA-Public Use
  Company Number: None

PATIENT
  Age: 53 Year
  Sex: Male
  Weight: 108.5 kg

DRUGS (4)
  1. TRIAMTERENE AND HYDROCHLOROTHIAZIDE [Suspect]
  2. ASPIRIN [Concomitant]
  3. TRAZODONE HCL [Concomitant]
  4. NAPROXEN [Concomitant]

REACTIONS (1)
  - URTICARIA [None]
